FAERS Safety Report 22324636 (Version 1)
Quarter: 2023Q2

REPORT INFORMATION
  Report Type: Spontaneous
  Country: US (occurrence: US)
  Receive Date: 20230516
  Receipt Date: 20230516
  Transmission Date: 20230722
  Serious: Yes (Other)
  Sender: FDA-Public Use
  Company Number: US-SUN PHARMACEUTICAL INDUSTRIES LTD-2023R1-388350

PATIENT
  Sex: Female

DRUGS (4)
  1. CLINDAMYCIN [Suspect]
     Active Substance: CLINDAMYCIN
     Indication: Irrigation therapy
     Dosage: UNK
     Route: 048
  2. CEFAZOLIN [Suspect]
     Active Substance: CEFAZOLIN
     Indication: Irrigation therapy
     Dosage: UNK
     Route: 042
  3. GENTAMICIN [Suspect]
     Active Substance: GENTAMICIN
     Indication: Irrigation therapy
     Dosage: UNK
     Route: 065
  4. BACITRACIN [Suspect]
     Active Substance: BACITRACIN
     Indication: Irrigation therapy
     Dosage: UNK
     Route: 065

REACTIONS (1)
  - Systemic contact dermatitis [Recovered/Resolved]
